FAERS Safety Report 5203714-9 (Version None)
Quarter: 2007Q1

REPORT INFORMATION
  Report Type: 
  Country: None (occurrence: None)
  Receive Date: 20070110
  Receipt Date: 20061228
  Transmission Date: 20070707
  Serious: Yes (Death, Other)
  Sender: FDA-Public Use
  Company Number: US-ELI_LILLY_AND_COMPANY-US200605003006

PATIENT
  Age: 40 Year
  Sex: Male
  Weight: 117.46 kg

DRUGS (3)
  1. ZYPREXA [Suspect]
     Indication: BIPOLAR DISORDER
     Dosage: 30 MG, UNK
     Dates: start: 20060316
  2. ZYPREXA [Suspect]
     Dosage: 20 MG, DAILY (1/D)
     Route: 048
     Dates: start: 20000801, end: 20060417
  3. DEPAKOTE [Concomitant]
     Dosage: 1500 MG, UNK
     Dates: start: 19990101

REACTIONS (11)
  - ALCOHOL PROBLEM [None]
  - BLOOD PRESSURE INCREASED [None]
  - CARDIOMEGALY [None]
  - HALLUCINATION, VISUAL [None]
  - HEART RATE IRREGULAR [None]
  - NEGLECT OF PERSONAL APPEARANCE [None]
  - PARANOIA [None]
  - PRESCRIBED OVERDOSE [None]
  - SEDATION [None]
  - SLEEP APNOEA SYNDROME [None]
  - WEIGHT INCREASED [None]
